FAERS Safety Report 6931115-1 (Version None)
Quarter: 2010Q3

REPORT INFORMATION
  Report Type: 
  Country: None (occurrence: None)
  Receive Date: 20100818
  Receipt Date: 20100806
  Transmission Date: 20110219
  Serious: Yes (Hospitalization, Other)
  Sender: FDA-Public Use
  Company Number: FR-ELI_LILLY_AND_COMPANY-FR201008001800

PATIENT
  Sex: Male

DRUGS (9)
  1. GEMZAR [Suspect]
     Indication: ADENOCARCINOMA
     Route: 042
     Dates: start: 20090915
  2. GEMZAR [Suspect]
     Route: 042
     Dates: start: 20091006
  3. GEMZAR [Suspect]
     Route: 042
     Dates: start: 20091027
  4. ELOXATIN [Concomitant]
     Indication: ADENOCARCINOMA
     Route: 042
     Dates: start: 20090915
  5. EZETIMIBE/SIMVASTATIN [Concomitant]
     Dosage: UNK, UNKNOWN
     Route: 065
  6. COMPETACT [Concomitant]
     Dosage: UNK, UNKNOWN
     Route: 065
  7. COKENZEN [Concomitant]
     Dosage: UNK, UNKNOWN
     Route: 065
  8. TEMERIT [Concomitant]
     Dosage: UNK, UNKNOWN
     Route: 065
  9. TIMOPTOL [Concomitant]
     Dosage: UNK, UNKNOWN
     Route: 065

REACTIONS (4)
  - DEEP VEIN THROMBOSIS [None]
  - NEUTROPHIL COUNT DECREASED [None]
  - THROMBOCYTOPENIA [None]
  - WHITE BLOOD CELL COUNT DECREASED [None]
